FAERS Safety Report 7277850-X (Version None)
Quarter: 2011Q1

REPORT INFORMATION
  Report Type: 
  Country: None (occurrence: None)
  Receive Date: 20110207
  Receipt Date: 20110128
  Transmission Date: 20110831
  Serious: Yes (Other)
  Sender: FDA-Public Use
  Company Number: GB-SANOFI-AVENTIS-2011SA005976

PATIENT
  Age: 74 Year
  Sex: Female
  Weight: 70 kg

DRUGS (7)
  1. DALTEPARIN SODIUM [Concomitant]
  2. ATENOLOL [Concomitant]
  3. LEVOTHYROXINE SODIUM [Concomitant]
  4. QUININE [Concomitant]
  5. LANSOPRAZOLE [Concomitant]
  6. WARFARIN SODIUM [Concomitant]
  7. DRONEDARONE [Suspect]
     Indication: ATRIAL FIBRILLATION
     Route: 048
     Dates: start: 20100701, end: 20110124

REACTIONS (4)
  - HEPATOCELLULAR INJURY [None]
  - ALANINE AMINOTRANSFERASE INCREASED [None]
  - BLOOD ALKALINE PHOSPHATASE INCREASED [None]
  - LIVER FUNCTION TEST ABNORMAL [None]
